FAERS Safety Report 19422597 (Version 1)
Quarter: 2021Q2

REPORT INFORMATION
  Report Type: Spontaneous
  Country: US (occurrence: US)
  Receive Date: 20210616
  Receipt Date: 20210616
  Transmission Date: 20210717
  Serious: Yes (Other)
  Sender: FDA-Public Use
  Company Number: US-GLAXOSMITHKLINE-US2021GSK130282

PATIENT
  Sex: Male

DRUGS (4)
  1. RANITIDINE CAPSULE [Suspect]
     Active Substance: RANITIDINE
     Indication: GASTRITIS
     Dosage: UNKNOWN AT THIS TIME BOTH
     Route: 065
     Dates: start: 1990, end: 2019
  2. RANITIDINE. [Suspect]
     Active Substance: RANITIDINE
     Indication: GASTRITIS
     Dosage: UNKNOWN AT THIS TIME BOTH
     Route: 065
     Dates: start: 1990, end: 2019
  3. RANITIDINE. [Suspect]
     Active Substance: RANITIDINE
     Indication: GASTRITIS
     Dosage: UNKNOWN AT THIS TIME BOTH
     Route: 065
     Dates: start: 1990, end: 2019
  4. RANITIDINE. [Suspect]
     Active Substance: RANITIDINE
     Indication: GASTRITIS
     Dosage: UNKNOWN AT THIS TIME BOTH
     Route: 065
     Dates: start: 1990, end: 2019

REACTIONS (1)
  - Brain neoplasm malignant [Unknown]
